FAERS Safety Report 16336987 (Version 3)
Quarter: 2019Q3

REPORT INFORMATION
  Report Type: Spontaneous
  Country: US (occurrence: US)
  Receive Date: 20190521
  Receipt Date: 20190717
  Transmission Date: 20191004
  Serious: No
  Sender: FDA-Public Use
  Company Number: US-BAYER-2019-099612

PATIENT
  Age: 80 Year
  Sex: Female

DRUGS (1)
  1. CLIMARA PRO [Suspect]
     Active Substance: ESTRADIOL\LEVONORGESTREL
     Dosage: UNK
     Route: 062
     Dates: start: 20181220

REACTIONS (5)
  - Weight increased [Not Recovered/Not Resolved]
  - Application site rash [Not Recovered/Not Resolved]
  - Suspected product quality issue [Not Recovered/Not Resolved]
  - Rash macular [Not Recovered/Not Resolved]
  - Application site irritation [None]

NARRATIVE: CASE EVENT DATE: 201905
